FAERS Safety Report 6210207-9 (Version None)
Quarter: 2009Q2

REPORT INFORMATION
  Report Type: 
  Country: None (occurrence: None)
  Receive Date: 20090601
  Receipt Date: 20090528
  Transmission Date: 20091009
  Serious: Yes (Other)
  Sender: FDA-Public Use
  Company Number: JP-BAYER-200911764BYL

PATIENT
  Age: 74 Year
  Sex: Male
  Weight: 60 kg

DRUGS (1)
  1. NEXAVAR [Suspect]
     Indication: RENAL CELL CARCINOMA STAGE IV
     Dosage: UNIT DOSE: 200 MG
     Route: 048
     Dates: start: 20090415, end: 20090521

REACTIONS (2)
  - HEPATIC FUNCTION ABNORMAL [None]
  - HYPERTENSION [None]
